FAERS Safety Report 5141392-8 (Version None)
Quarter: 2006Q4

REPORT INFORMATION
  Report Type: 
  Country: None (occurrence: None)
  Receive Date: 20061101
  Receipt Date: 20061012
  Transmission Date: 20070319
  Serious: Yes (Hospitalization)
  Sender: FDA-Public Use
  Company Number: JP-JPN-A200604140

PATIENT
  Age: 70 Year
  Sex: Female
  Weight: 45 kg

DRUGS (16)
  1. PAXIL [Suspect]
     Indication: DEPRESSION
     Route: 048
     Dates: start: 20060710
  2. MENESIT [Concomitant]
     Indication: PARKINSON'S DISEASE
     Dosage: 300MG PER DAY
     Route: 048
  3. ARTANE [Concomitant]
     Indication: PARKINSON'S DISEASE
     Dosage: 4MG PER DAY
     Route: 048
  4. LIORESAL [Concomitant]
     Indication: CERVICOBRACHIAL SYNDROME
     Dosage: 15MG PER DAY
     Route: 048
  5. CABASER [Concomitant]
     Indication: PARKINSON'S DISEASE
     Dosage: 2MG PER DAY
     Route: 048
     Dates: end: 20061003
  6. MAGNESIUM OXIDE [Concomitant]
     Indication: CONSTIPATION
     Dosage: 2.01G PER DAY
     Route: 048
     Dates: start: 20060415, end: 20060730
  7. DEPAS [Concomitant]
     Indication: ANXIETY
     Dosage: 1.5MG PER DAY
     Route: 048
     Dates: start: 20060415, end: 20060905
  8. PURSENNID [Concomitant]
     Indication: CONSTIPATION
     Dosage: 24MG PER DAY
     Route: 048
     Dates: start: 20060415
  9. MEILAX [Concomitant]
     Indication: ANXIETY
     Dosage: 2MG PER DAY
     Route: 048
     Dates: start: 20060722, end: 20060905
  10. HOCHU-EKKI-TO [Concomitant]
     Indication: NASOPHARYNGITIS
     Dosage: 7.5G PER DAY
     Route: 048
     Dates: start: 20060710, end: 20060723
  11. LENDORMIN [Concomitant]
     Indication: INSOMNIA
     Dosage: .25MG PER DAY
     Route: 048
     Dates: start: 20060722, end: 20060728
  12. PL [Concomitant]
     Indication: NASOPHARYNGITIS
     Dosage: 3G PER DAY
     Route: 048
     Dates: start: 20060728, end: 20060731
  13. GLORIAMIN [Concomitant]
     Indication: GASTRITIS
     Dosage: 2.01G PER DAY
     Route: 048
     Dates: start: 20060728, end: 20060731
  14. FOSMICIN S [Concomitant]
     Indication: ENTEROCOLITIS
     Dosage: 2000MG PER DAY
     Route: 048
     Dates: start: 20060731, end: 20060809
  15. LEVOFLOXACIN [Concomitant]
     Indication: PHARYNGITIS
     Dosage: 300MG PER DAY
     Route: 048
     Dates: start: 20060804, end: 20060807
  16. LENDORMIN [Concomitant]
     Dosage: .25MG PER DAY
     Route: 048
     Dates: start: 20060901, end: 20060901

REACTIONS (6)
  - DELUSION [None]
  - HALLUCINATION [None]
  - LOGORRHOEA [None]
  - MENTAL IMPAIRMENT [None]
  - PERFORMANCE STATUS DECREASED [None]
  - SEROTONIN SYNDROME [None]
